FAERS Safety Report 7596439-6 (Version None)
Quarter: 2011Q3

REPORT INFORMATION
  Report Type: 
  Country: None (occurrence: None)
  Receive Date: 20110708
  Receipt Date: 20110704
  Transmission Date: 20111222
  Serious: Yes (Other)
  Sender: FDA-Public Use
  Company Number: SE-BRISTOL-MYERS SQUIBB COMPANY-15878515

PATIENT
  Age: 82 Year
  Sex: Female

DRUGS (2)
  1. ATACAND [Suspect]
  2. METFORMIN HCL [Suspect]

REACTIONS (1)
  - RENAL FAILURE ACUTE [None]
